FAERS Safety Report 25899479 (Version 2)
Quarter: 2025Q4

REPORT INFORMATION
  Report Type: Spontaneous
  Country: US (occurrence: US)
  Receive Date: 20251009
  Receipt Date: 20251022
  Transmission Date: 20260117
  Serious: No
  Sender: MICRO LABS LIMITED
  Company Number: US-MICRO LABS LIMITED-ML2025-05187

PATIENT
  Sex: Female

DRUGS (1)
  1. BIMATOPROST [Suspect]
     Active Substance: BIMATOPROST
     Indication: Glaucoma
     Route: 047

REACTIONS (1)
  - Hypersensitivity [Unknown]
